FAERS Safety Report 7860737-9 (Version None)
Quarter: 2011Q4

REPORT INFORMATION
  Report Type: 
  Country: None (occurrence: None)
  Receive Date: 20111027
  Receipt Date: 20111018
  Transmission Date: 20120403
  Serious: Yes (Other)
  Sender: FDA-Public Use
  Company Number: US-ELI_LILLY_AND_COMPANY-US201110006337

PATIENT
  Age: 66 Year
  Sex: Female

DRUGS (1)
  1. EFFIENT [Suspect]
     Indication: ACUTE CORONARY SYNDROME
     Dosage: 10 MG, UNKNOWN
     Dates: start: 20110401

REACTIONS (7)
  - CATHETER SITE OEDEMA [None]
  - ANAEMIA [None]
  - HYPOTENSION [None]
  - PAIN [None]
  - CONTUSION [None]
  - SURGERY [None]
  - ARTHRITIS [None]
